FAERS Safety Report 9772939 (Version 1)
Quarter: 2013Q4

REPORT INFORMATION
  Report Type: Spontaneous
  Country: US (occurrence: None)
  Receive Date: 20131217
  Receipt Date: 20131217
  Transmission Date: 20140711
  Serious: Yes (Hospitalization)
  Sender: FDA-Public Use
  Company Number: 20130705

PATIENT
  Age: 39 Year
  Sex: Female
  Weight: 63.9 kg

DRUGS (1)
  1. FERINJECT [Suspect]
     Indication: PRODUCT USED FOR UNKNOWN INDICATION
     Route: 042
     Dates: start: 20130403, end: 20130403

REACTIONS (3)
  - Malaise [None]
  - Arthralgia [None]
  - Serum sickness [None]
